FAERS Safety Report 10610684 (Version 2)
Quarter: 2014Q4

REPORT INFORMATION
  Report Type: Report from Study
  Country: US (occurrence: US)
  Receive Date: 20141126
  Receipt Date: 20141126
  Transmission Date: 20150529
  Serious: Yes (Hospitalization, Other)
  Sender: FDA-Public Use
  Company Number: US-BAYER-2014-170903

PATIENT
  Age: 49 Year
  Sex: Male

DRUGS (2)
  1. STIVARGA [Suspect]
     Active Substance: REGORAFENIB
     Indication: METASTASES TO LIVER
  2. STIVARGA [Suspect]
     Active Substance: REGORAFENIB
     Indication: COLORECTAL CANCER STAGE IV
     Dosage: 160 MG, DAILY
     Route: 048
     Dates: start: 20141027, end: 20141114

REACTIONS (10)
  - Dry skin [None]
  - Skin fissures [None]
  - Pain in extremity [None]
  - Intestinal obstruction [Not Recovered/Not Resolved]
  - Candida infection [None]
  - Nausea [None]
  - Bedridden [None]
  - Decreased appetite [None]
  - Weight decreased [None]
  - Bronchitis [None]

NARRATIVE: CASE EVENT DATE: 20141027
